FAERS Safety Report 8260878 (Version 2)
Quarter: 2012Q4

REPORT INFORMATION
  Report Type: 
  Country: US (occurrence: US)
  Receive Date: 20111123
  Receipt Date: 20120926
  Transmission Date: 20130627
  Serious: Yes (Disabling, Other)
  Sender: FDA-Public Use
  Company Number: US-US-EMD SERONO, INC.-7096899

PATIENT
  Age: 51 None
  Sex: Female

DRUGS (2)
  1. REBIF [Suspect]
     Indication: MULTIPLE SCLEROSIS
     Route: 058
     Dates: start: 20060324, end: 20110525
  2. REBIF [Suspect]
     Route: 058
     Dates: start: 201106

REACTIONS (6)
  - Cystitis noninfective [Unknown]
  - Pain [Not Recovered/Not Resolved]
  - Anaphylactic reaction [Unknown]
  - Facial neuralgia [Not Recovered/Not Resolved]
  - Aphasia [Recovered/Resolved]
  - Influenza like illness [Unknown]
